FAERS Safety Report 19377070 (Version 1)
Quarter: 2021Q2

REPORT INFORMATION
  Report Type: Spontaneous
  Country: US (occurrence: US)
  Receive Date: 20210604
  Receipt Date: 20210604
  Transmission Date: 20210717
  Serious: No
  Sender: FDA-Public Use
  Company Number: US-PERRIGO-21US004506

PATIENT
  Sex: Female

DRUGS (3)
  1. DICLOFENAC SODIUM. [Suspect]
     Active Substance: DICLOFENAC SODIUM
     Indication: OFF LABEL USE
     Dosage: SMALL AMOUNT, TID
     Route: 061
     Dates: start: 20210329, end: 20210329
  2. DICLOFENAC SODIUM. [Suspect]
     Active Substance: DICLOFENAC SODIUM
     Dosage: SMALL AMOUNT, QID
     Route: 061
     Dates: start: 20210330, end: 20210330
  3. DICLOFENAC SODIUM. [Suspect]
     Active Substance: DICLOFENAC SODIUM
     Dosage: SMALL AMOUNT, SINGLE
     Route: 061
     Dates: start: 20210331, end: 20210331

REACTIONS (5)
  - Nasal oedema [Unknown]
  - Sinus congestion [Unknown]
  - Perfume sensitivity [Unknown]
  - Asthma [Unknown]
  - Off label use [Recovered/Resolved]

NARRATIVE: CASE EVENT DATE: 20210329
